FAERS Safety Report 23158491 (Version 1)
Quarter: 2023Q4

REPORT INFORMATION
  Report Type: Spontaneous
  Country: US (occurrence: US)
  Receive Date: 20231108
  Receipt Date: 20231108
  Transmission Date: 20240109
  Serious: No
  Sender: FDA-Public Use
  Company Number: US-BRISTOL-MYERS SQUIBB COMPANY-2023-159658

PATIENT
  Age: 92 Year
  Sex: Male

DRUGS (1)
  1. POMALYST [Suspect]
     Active Substance: POMALIDOMIDE
     Indication: Product used for unknown indication
     Dosage: DOSE : UNKNOWN (CALLER NEEDED TO HANG;     FREQ : UNKNOWN (CALLER NEEDED TO HANG UP)

REACTIONS (3)
  - Somnolence [Unknown]
  - Dysarthria [Unknown]
  - Gait disturbance [Unknown]
